FAERS Safety Report 22936632 (Version 4)
Quarter: 2023Q4

REPORT INFORMATION
  Report Type: Report from Study
  Country: US (occurrence: US)
  Receive Date: 20230912
  Receipt Date: 20231227
  Transmission Date: 20240109
  Serious: Yes (Life-Threatening, Hospitalization)
  Sender: FDA-Public Use
  Company Number: US-HORIZON THERAPEUTICS-HZN-2023-005208

PATIENT

DRUGS (3)
  1. RAVICTI [Suspect]
     Active Substance: GLYCEROL PHENYLBUTYRATE
     Indication: Carbamoyl phosphate synthetase deficiency
     Dosage: UNK
     Route: 065
     Dates: start: 20230609
  2. RAVICTI [Suspect]
     Active Substance: GLYCEROL PHENYLBUTYRATE
     Dosage: 25ML, 2 BOTTLES FOR 27 DAYS
     Route: 048
     Dates: start: 2023
  3. RAVICTI [Suspect]
     Active Substance: GLYCEROL PHENYLBUTYRATE
     Dosage: 25 ML, 3 BOTTLES, 31 DAYS
     Route: 048
     Dates: start: 2023

REACTIONS (5)
  - Ammonia increased [Recovering/Resolving]
  - Vomiting [Unknown]
  - Hospitalisation [Not Recovered/Not Resolved]
  - Irritability [Unknown]
  - Feeling abnormal [Unknown]

NARRATIVE: CASE EVENT DATE: 20230101
